FAERS Safety Report 19770363 (Version 1)
Quarter: 2021Q3

REPORT INFORMATION
  Report Type: Spontaneous
  Country: US (occurrence: US)
  Receive Date: 20210831
  Receipt Date: 20210831
  Transmission Date: 20211014
  Serious: No
  Sender: FDA-Public Use
  Company Number: None

PATIENT
  Age: 72 Year
  Sex: Male
  Weight: 112 kg

DRUGS (1)
  1. REGEN?COV [Suspect]
     Active Substance: CASIRIVIMAB\IMDEVIMAB
     Indication: COVID-19
     Route: 042
     Dates: start: 20201230, end: 20201230

REACTIONS (5)
  - Vision blurred [None]
  - Flatulence [None]
  - Lethargy [None]
  - Headache [None]
  - Dysgeusia [None]

NARRATIVE: CASE EVENT DATE: 20201230
